FAERS Safety Report 9255445 (Version 1)
Quarter: 2013Q2

REPORT INFORMATION
  Report Type: Spontaneous
  Country: FR (occurrence: FR)
  Receive Date: 20130425
  Receipt Date: 20130425
  Transmission Date: 20140414
  Serious: Yes (Hospitalization)
  Sender: FDA-Public Use
  Company Number: FR-ASTRAZENECA-2013SE26267

PATIENT
  Age: 4864 Week
  Sex: Male

DRUGS (10)
  1. INEXIUM [Suspect]
     Route: 042
     Dates: start: 20130105, end: 20130117
  2. DOLIPRANE [Suspect]
     Route: 048
     Dates: start: 20121229, end: 20121230
  3. DOLIPRANE [Suspect]
     Dosage: PARACETAMOL (MACOPHARMA)
     Route: 042
     Dates: start: 20121231, end: 20130104
  4. DOLIPRANE [Suspect]
     Route: 048
     Dates: start: 20130105, end: 20130117
  5. VANCOMYCINE (MYLAN) [Suspect]
     Dates: start: 20130103, end: 20130110
  6. TOPALGIC SR [Suspect]
     Route: 048
     Dates: start: 20121230, end: 20121230
  7. SPASFON [Suspect]
     Route: 048
     Dates: start: 20130105, end: 20130117
  8. LOVENOX [Suspect]
     Route: 042
     Dates: start: 20121230, end: 20130118
  9. FLAGYL [Suspect]
     Route: 042
     Dates: start: 20130102, end: 20130104
  10. CEFTRIAXONE (MYLAN) [Suspect]
     Route: 042
     Dates: start: 20130102, end: 20130103

REACTIONS (3)
  - Drug reaction with eosinophilia and systemic symptoms [Recovered/Resolved]
  - Renal failure acute [None]
  - Toxic skin eruption [None]
